FAERS Safety Report 20582536 (Version 3)
Quarter: 2022Q2

REPORT INFORMATION
  Report Type: Spontaneous
  Country: FR (occurrence: None)
  Receive Date: 20220311
  Receipt Date: 20220411
  Transmission Date: 20220721
  Serious: Yes (Hospitalization)
  Sender: FDA-Public Use
  Company Number: FR-Merck Healthcare KGaA-9304501

PATIENT
  Age: 32 Year
  Sex: Female

DRUGS (4)
  1. CHORIOGONADOTROPIN ALFA [Suspect]
     Active Substance: CHORIOGONADOTROPIN ALFA
     Indication: Assisted fertilisation
     Dosage: 250 MICROGRAMS/0.5 ML
     Route: 058
     Dates: start: 20211115, end: 20211115
  2. FOLLITROPIN ALFA [Suspect]
     Active Substance: FOLLITROPIN ALFA
     Indication: Assisted fertilisation
     Dosage: 75 IU/ 0.125 ML
     Route: 058
     Dates: start: 20211115
  3. DUPHASTON [Suspect]
     Active Substance: DYDROGESTERONE
     Indication: Amenorrhoea
  4. PROGESTERONE [Suspect]
     Active Substance: PROGESTERONE
     Indication: Assisted fertilisation
     Route: 067
     Dates: start: 20211115

REACTIONS (1)
  - Idiopathic intracranial hypertension [Recovering/Resolving]

NARRATIVE: CASE EVENT DATE: 20210101
